FAERS Safety Report 5249253-0 (Version None)
Quarter: 2007Q1

REPORT INFORMATION
  Report Type: 
  Country: None (occurrence: None)
  Receive Date: 20070228
  Receipt Date: 20070216
  Transmission Date: 20070707
  Serious: Yes (Hospitalization)
  Sender: FDA-Public Use
  Company Number: KR-ROCHE-482890

PATIENT
  Age: 53 Year
  Sex: Female
  Weight: 54.3 kg

DRUGS (2)
  1. CAPECITABINE [Suspect]
     Dosage: ADMINISTERED TWICE DAILY FOR TWO WEEKS OF A THREE WEEK CYCLE.
     Route: 048
     Dates: start: 20060911, end: 20070215
  2. OXALIPLATIN [Suspect]
     Dosage: DOSAGE FORM REPORTED AS INFUSION. FREQUENCY REPORTED AS 1. ADMINISTERED ON DAY 1 OF THE CYCLE.
     Route: 042
     Dates: start: 20060911

REACTIONS (1)
  - INTESTINAL OBSTRUCTION [None]
